FAERS Safety Report 9613511 (Version 1)
Quarter: 2013Q4

REPORT INFORMATION
  Report Type: Spontaneous
  Country: US (occurrence: US)
  Receive Date: 20131010
  Receipt Date: 20131010
  Transmission Date: 20140711
  Serious: No
  Sender: FDA-Public Use
  Company Number: US-BAYER-2013-122837

PATIENT
  Sex: Female

DRUGS (3)
  1. ALEVE CAPLET [Suspect]
     Indication: MIGRAINE
     Dosage: UNK
  2. MOTRIN [Suspect]
     Indication: MIGRAINE
     Dosage: UNK
  3. TYLENOL [PARACETAMOL] [Suspect]
     Indication: MIGRAINE
     Dosage: UNK

REACTIONS (1)
  - Drug ineffective [None]
